FAERS Safety Report 20493400 (Version 6)
Quarter: 2022Q4

REPORT INFORMATION
  Report Type: Spontaneous
  Country: DE (occurrence: DE)
  Receive Date: 20220220
  Receipt Date: 20221109
  Transmission Date: 20230112
  Serious: Yes (Hospitalization, Other)
  Sender: FDA-Public Use
  Company Number: DE-BIOGEN-2021BI00991593

PATIENT
  Age: 28 Year
  Sex: Female

DRUGS (7)
  1. TYSABRI [Suspect]
     Active Substance: NATALIZUMAB
     Indication: Multiple sclerosis
     Route: 050
     Dates: start: 20160701
  2. TYSABRI [Suspect]
     Active Substance: NATALIZUMAB
     Route: 050
     Dates: start: 20160715, end: 20210514
  3. DULOXETINE [Concomitant]
     Active Substance: DULOXETINE
     Indication: Depression
     Route: 050
     Dates: start: 20200624
  4. PREGABALIN [Concomitant]
     Active Substance: PREGABALIN
     Indication: Pain
     Route: 050
     Dates: start: 20200624
  5. PREGABALIN [Concomitant]
     Active Substance: PREGABALIN
     Route: 050
  6. TRIMIPRAMINE [Concomitant]
     Active Substance: TRIMIPRAMINE
     Indication: Depression
     Route: 050
     Dates: start: 20200624, end: 20210919
  7. TRIMIPRAMINE [Concomitant]
     Active Substance: TRIMIPRAMINE
     Route: 050

REACTIONS (9)
  - Placenta praevia [Recovered/Resolved]
  - Foetal malposition [Unknown]
  - Premature rupture of membranes [Unknown]
  - Vaginal haemorrhage [Recovered/Resolved]
  - Cervix haematoma uterine [Unknown]
  - Blood disorder [Unknown]
  - Maternal exposure during pregnancy [Recovered/Resolved]
  - Leukocytosis [Unknown]
  - Prescribed underdose [Unknown]

NARRATIVE: CASE EVENT DATE: 20201201
